FAERS Safety Report 6409926-0 (Version None)
Quarter: 2009Q4

REPORT INFORMATION
  Report Type: 
  Country: None (occurrence: None)
  Receive Date: 20091022
  Receipt Date: 20091008
  Transmission Date: 20100525
  Serious: Yes (Hospitalization)
  Sender: FDA-Public Use
  Company Number: SE-ABBOTT-09P-150-0583646-00

PATIENT
  Age: 58 Year
  Sex: Female

DRUGS (3)
  1. KALETRA [Suspect]
     Indication: HIV INFECTION
     Dates: start: 20080116
  2. KALETRA [Suspect]
     Route: 048
     Dates: start: 20060707, end: 20080116
  3. KIVEXA [Concomitant]
     Indication: HIV INFECTION
     Dates: start: 20080116

REACTIONS (4)
  - BONE MARROW DISORDER [None]
  - PLATELET DISORDER [None]
  - RED BLOOD CELL ABNORMALITY [None]
  - WHITE BLOOD CELL DISORDER [None]
